FAERS Safety Report 8379035-2 (Version None)
Quarter: 2012Q2

REPORT INFORMATION
  Report Type: 
  Country: None (occurrence: None)
  Receive Date: 20120522
  Receipt Date: 20120522
  Transmission Date: 20120825
  Serious: Yes (Other)
  Sender: FDA-Public Use
  Company Number: None

PATIENT
  Age: 27 Year
  Sex: Female
  Weight: 65.7716 kg

DRUGS (2)
  1. HYDROCHLOROTHIAZIDE [Suspect]
     Indication: HYPERTENSION
     Dosage: 25 MG 1 DAILY ORAL
     Route: 048
     Dates: start: 20110801
  2. NORVASC [Suspect]
     Indication: HYPERTENSION
     Dosage: 2.5 MG 1 DAILY ORAL
     Route: 048
     Dates: start: 20090601

REACTIONS (3)
  - TRICHORRHEXIS [None]
  - ALOPECIA [None]
  - HAIR TEXTURE ABNORMAL [None]
